FAERS Safety Report 21271182 (Version 4)
Quarter: 2022Q4

REPORT INFORMATION
  Report Type: Spontaneous
  Country: US (occurrence: US)
  Receive Date: 20220830
  Receipt Date: 20221219
  Transmission Date: 20230112
  Serious: Yes (Hospitalization, Other)
  Sender: FDA-Public Use
  Company Number: US-BRISTOL-MYERS SQUIBB COMPANY-2022-098055

PATIENT
  Age: 86 Year
  Sex: Female
  Weight: 71.21 kg

DRUGS (2)
  1. REVLIMID [Suspect]
     Active Substance: LENALIDOMIDE
     Indication: Plasma cell myeloma
     Dosage: FREQ - DAILY ON DAYS 1-21 EVERY 28 DAYS
     Route: 048
     Dates: start: 20220310
  2. REVLIMID [Suspect]
     Active Substance: LENALIDOMIDE
     Dosage: FREQ - DAILY X 21 DAYS ON AND 7 DAYS OFF
     Route: 048
     Dates: start: 20220318, end: 20221212

REACTIONS (6)
  - Insomnia [Not Recovered/Not Resolved]
  - Fatigue [Not Recovered/Not Resolved]
  - Dyspnoea [Unknown]
  - Rash pruritic [Unknown]
  - Rash [Unknown]
  - Gastric ulcer haemorrhage [Recovered/Resolved]

NARRATIVE: CASE EVENT DATE: 20221201
